FAERS Safety Report 12586482 (Version 4)
Quarter: 2020Q3

REPORT INFORMATION
  Report Type: Spontaneous
  Country: US (occurrence: US)
  Receive Date: 20160725
  Receipt Date: 20200805
  Transmission Date: 20201102
  Serious: No
  Sender: FDA-Public Use
  Company Number: US-PFIZER INC-2016313546

PATIENT
  Age: 79 Year
  Sex: Female
  Weight: 61 kg

DRUGS (9)
  1. IBRANCE [Suspect]
     Active Substance: PALBOCICLIB
     Dosage: 100 MG, CYCLIC (21 DAYS,  OFF 7 DAYS)
     Dates: start: 20160419, end: 2016
  2. FASLODEX [Concomitant]
     Active Substance: FULVESTRANT
     Dosage: 500 MG, MONTHLY  (EVERY 4 WEEKS)
     Dates: start: 20160106
  3. IBRANCE [Suspect]
     Active Substance: PALBOCICLIB
     Dosage: 75 MG, UNK
  4. IBRANCE [Suspect]
     Active Substance: PALBOCICLIB
     Dosage: 125 MG, CYCLIC (21 DAYS OFF 7 DAY)
     Dates: start: 20160315, end: 2016
  5. IBRANCE [Suspect]
     Active Substance: PALBOCICLIB
     Indication: BREAST CANCER FEMALE
     Dosage: 125 MG, CYCLIC (21 DAYS OFF 7 DAY)
     Dates: start: 20160114, end: 2016
  6. IBRANCE [Suspect]
     Active Substance: PALBOCICLIB
     Dosage: 100 MG, CYCLIC (21 DAYS, OFF 7 DAY)
     Dates: start: 20160527, end: 20160621
  7. IBRANCE [Suspect]
     Active Substance: PALBOCICLIB
     Dosage: 100 MG, CYCLIC (21 DAYS, OFF 7 DAYS)
     Dates: start: 20160701
  8. XGEVA [Concomitant]
     Active Substance: DENOSUMAB
     Dosage: 125 MG, MONTHLY  (EVERY 4 WEEKS)
     Dates: start: 20160106
  9. IBRANCE [Suspect]
     Active Substance: PALBOCICLIB
     Dosage: 125 MG, CYCLIC (21 DAYS OFF 7 DAY)
     Dates: start: 20160215, end: 2016

REACTIONS (5)
  - Blood count abnormal [Recovered/Resolved]
  - Oropharyngeal pain [Recovered/Resolved]
  - Illness [Unknown]
  - Stomatitis [Recovered/Resolved]
  - Nasopharyngitis [Recovered/Resolved]

NARRATIVE: CASE EVENT DATE: 20160208
